FAERS Safety Report 25032438 (Version 1)
Quarter: 2025Q1

REPORT INFORMATION
  Report Type: Spontaneous
  Country: GB (occurrence: GB)
  Receive Date: 20250303
  Receipt Date: 20250303
  Transmission Date: 20250409
  Serious: Yes (Disabling)
  Sender: ALEXION PHARMACEUTICALS
  Company Number: GB-ASTRAZENECA-202502GLO026161GB

PATIENT
  Age: 31 Year
  Weight: 68 kg

DRUGS (2)
  1. OMEPRAZOLE [Suspect]
     Active Substance: OMEPRAZOLE
     Dosage: 10 MG ONCE IN MORNING BEFORE BREAKFAST
     Route: 065
  2. OMEPRAZOLE [Suspect]
     Active Substance: OMEPRAZOLE
     Route: 065

REACTIONS (5)
  - Dizziness [Unknown]
  - Gastrointestinal sounds abnormal [Unknown]
  - Tinnitus [Not Recovered/Not Resolved]
  - Abdominal pain lower [Not Recovered/Not Resolved]
  - Nausea [Not Recovered/Not Resolved]
